FAERS Safety Report 6484012-2 (Version None)
Quarter: 2009Q4

REPORT INFORMATION
  Report Type: 
  Country: None (occurrence: None)
  Receive Date: 20091208
  Receipt Date: 20091208
  Transmission Date: 20100525
  Serious: Yes (Death)
  Sender: FDA-Public Use
  Company Number: None

PATIENT
  Age: 35 Year
  Sex: Female
  Weight: 65 kg

DRUGS (1)
  1. LOPINAVIR / RITONAVIR (ALUVIA) [Suspect]
     Indication: HIV INFECTION
     Dosage: 400/100 MG BID ORAL
     Route: 048
     Dates: start: 20080730, end: 20091111

REACTIONS (8)
  - ANAEMIA [None]
  - HYPERTENSION [None]
  - MALARIA [None]
  - MUSCULAR WEAKNESS [None]
  - PAIN [None]
  - UPPER RESPIRATORY TRACT INFECTION [None]
  - VOMITING [None]
  - WHITE BLOOD CELL COUNT DECREASED [None]
